FAERS Safety Report 16938210 (Version 2)
Quarter: 2019Q4

REPORT INFORMATION
  Report Type: Report from Study
  Country: US (occurrence: US)
  Receive Date: 20191018
  Receipt Date: 20191108
  Transmission Date: 20200122
  Serious: Yes (Hospitalization)
  Sender: FDA-Public Use
  Company Number: US-BAUSCH-BL-2019-058147

PATIENT
  Sex: Male
  Weight: 113.05 kg

DRUGS (1)
  1. XENAZINE [Suspect]
     Active Substance: TETRABENAZINE
     Indication: HUNTINGTON^S DISEASE
     Route: 048
     Dates: start: 20150909

REACTIONS (4)
  - Therapy cessation [Unknown]
  - Product supply issue [Unknown]
  - Hospitalisation [Unknown]
  - Prescribed overdose [Unknown]
